FAERS Safety Report 12391164 (Version 1)
Quarter: 2016Q2

REPORT INFORMATION
  Report Type: Spontaneous
  Country: US (occurrence: US)
  Receive Date: 20160520
  Receipt Date: 20160520
  Transmission Date: 20160815
  Serious: No
  Sender: FDA-Public Use
  Company Number: US-PFIZER INC-2016268850

PATIENT
  Sex: Female

DRUGS (2)
  1. PIROXICAM. [Concomitant]
     Active Substance: PIROXICAM
  2. IBRANCE [Suspect]
     Active Substance: PALBOCICLIB
     Indication: BREAST CANCER FEMALE
     Dosage: 125 MG, FOR 21DAYS ON AND 7 DAYS OFF, CYCLIC
     Route: 048
     Dates: start: 20160426

REACTIONS (2)
  - Oral pain [Unknown]
  - Constipation [Unknown]
